FAERS Safety Report 24088099 (Version 2)
Quarter: 2024Q3

REPORT INFORMATION
  Report Type: Spontaneous
  Country: US (occurrence: US)
  Receive Date: 20240715
  Receipt Date: 20240715
  Transmission Date: 20241017
  Serious: Yes (Other)
  Sender: ROCHE
  Company Number: US-SANDOZ-SDZ2024US062631

PATIENT
  Sex: Female

DRUGS (7)
  1. XOLAIR [Suspect]
     Active Substance: OMALIZUMAB
     Indication: Product used for unknown indication
     Dosage: UNK, (FOR 6 MONTHS)
     Route: 065
  2. OMEPRAZOLE [Suspect]
     Active Substance: OMEPRAZOLE
     Indication: Product used for unknown indication
     Dosage: UNK
     Route: 065
  3. FLUCONAZOLE [Suspect]
     Active Substance: FLUCONAZOLE
     Indication: Product used for unknown indication
     Dosage: UNK
     Route: 065
  4. SERTRALINE [Suspect]
     Active Substance: SERTRALINE HYDROCHLORIDE
     Indication: Product used for unknown indication
     Dosage: UNK
     Route: 065
  5. FEXOFENADINE [Suspect]
     Active Substance: FEXOFENADINE HYDROCHLORIDE
     Indication: Product used for unknown indication
     Dosage: UNK
     Route: 065
  6. METRONIDAZOLE [Suspect]
     Active Substance: METRONIDAZOLE
     Indication: Product used for unknown indication
     Dosage: UNK
     Route: 065
  7. MONTELUKAST [Suspect]
     Active Substance: MONTELUKAST SODIUM
     Indication: Product used for unknown indication
     Dosage: UNK
     Route: 065

REACTIONS (22)
  - Mast cell activation syndrome [Unknown]
  - Angioedema [Unknown]
  - Hallucination [Recovered/Resolved]
  - Abnormal dreams [Recovered/Resolved]
  - Tachycardia [Recovered/Resolved]
  - Panic reaction [Recovered/Resolved]
  - Decreased appetite [Recovered/Resolved]
  - Bladder pain [Unknown]
  - Blood urine present [Unknown]
  - Brain fog [Unknown]
  - Attention deficit hyperactivity disorder [Unknown]
  - Fatigue [Unknown]
  - Insomnia [Unknown]
  - Sympathomimetic effect [Unknown]
  - Nausea [Recovered/Resolved]
  - Anxiety [Recovered/Resolved]
  - Pyrexia [Unknown]
  - Idiopathic urticaria [Unknown]
  - Drug intolerance [Unknown]
  - Gastritis [Unknown]
  - Reflux gastritis [Unknown]
  - Weight decreased [Unknown]

NARRATIVE: CASE EVENT DATE: 20200101
